FAERS Safety Report 11440574 (Version 1)
Quarter: 2015Q3

REPORT INFORMATION
  Report Type: Spontaneous
  Country: US (occurrence: US)
  Receive Date: 20150821
  Receipt Date: 20150821
  Transmission Date: 20151125
  Serious: No
  Sender: FDA-Public Use
  Company Number: US-ELI_LILLY_AND_COMPANY-US200706004489

PATIENT
  Age: 61 Year
  Sex: Male

DRUGS (6)
  1. CYMBALTA [Suspect]
     Active Substance: DULOXETINE HYDROCHLORIDE
     Dosage: 60 MG, EACH EVENING
     Dates: start: 200706
  2. PAXIL [Concomitant]
     Active Substance: PAROXETINE HYDROCHLORIDE
     Dosage: 40 MG, EACH EVENING
  3. ATIVAN [Concomitant]
     Active Substance: LORAZEPAM
  4. CYMBALTA [Suspect]
     Active Substance: DULOXETINE HYDROCHLORIDE
     Dosage: 30 MG, EACH EVENING
     Dates: start: 20070620
  5. CYMBALTA [Suspect]
     Active Substance: DULOXETINE HYDROCHLORIDE
     Indication: BACK PAIN
     Dosage: 30 MG, EACH EVENING
     Dates: start: 200706
  6. ATENOLOL. [Concomitant]
     Active Substance: ATENOLOL
     Indication: BLOOD PRESSURE MEASUREMENT

REACTIONS (1)
  - Tongue discolouration [Not Recovered/Not Resolved]

NARRATIVE: CASE EVENT DATE: 20070618
